FAERS Safety Report 6389038-5 (Version None)
Quarter: 2009Q4

REPORT INFORMATION
  Report Type: 
  Country: None (occurrence: None)
  Receive Date: 20091005
  Receipt Date: 20090921
  Transmission Date: 20100525
  Serious: Yes (Other)
  Sender: FDA-Public Use
  Company Number: GB-BAUSCH-2009BL004780

PATIENT
  Age: 4 Year
  Sex: Female

DRUGS (1)
  1. CYCLOPENTOLATE HCL [Suspect]
     Indication: CYCLOPLEGIC REFRACTION
     Route: 047
     Dates: start: 20090824, end: 20090824

REACTIONS (6)
  - DISORIENTATION [None]
  - HEART RATE DECREASED [None]
  - HYPOTONIA [None]
  - LIP DISCOLOURATION [None]
  - NAUSEA [None]
  - SOMNOLENCE [None]
